FAERS Safety Report 5944781-4 (Version None)
Quarter: 2008Q4

REPORT INFORMATION
  Report Type: 
  Country: None (occurrence: None)
  Receive Date: 20081106
  Receipt Date: 20081106
  Transmission Date: 20090506
  Serious: Yes (Hospitalization)
  Sender: FDA-Public Use
  Company Number: None

PATIENT
  Age: 39 Year
  Sex: Male
  Weight: 101 kg

DRUGS (1)
  1. HUMIRA [Suspect]
     Indication: PSORIATIC ARTHROPATHY
     Dosage: 20 MILLIGRAMS WEEKLY SQ
     Route: 058

REACTIONS (9)
  - BLASTOMYCOSIS [None]
  - DRUG INEFFECTIVE [None]
  - LUNG CONSOLIDATION [None]
  - NITRITE URINE PRESENT [None]
  - PNEUMONIA [None]
  - RENAL FAILURE ACUTE [None]
  - SINUSITIS [None]
  - TACHYCARDIA [None]
  - TACHYPNOEA [None]
